FAERS Safety Report 11929047 (Version 5)
Quarter: 2016Q3

REPORT INFORMATION
  Report Type: Spontaneous
  Country: US (occurrence: US)
  Receive Date: 20160120
  Receipt Date: 20160824
  Transmission Date: 20161109
  Serious: Yes (Other)
  Sender: FDA-Public Use
  Company Number: US-ROCHE-1695894

PATIENT
  Age: 17 Year
  Sex: Female
  Weight: 46 kg

DRUGS (3)
  1. FLUOXETINE [Concomitant]
     Active Substance: FLUOXETINE HYDROCHLORIDE
     Indication: DEPRESSION
     Route: 048
     Dates: start: 201601
  2. PEGASYS [Suspect]
     Active Substance: PEGINTERFERON ALFA-2A
     Indication: MALIGNANT MELANOMA
     Route: 058
     Dates: start: 20151117, end: 201607
  3. PEGASYS [Suspect]
     Active Substance: PEGINTERFERON ALFA-2A
     Route: 058
     Dates: start: 20151211

REACTIONS (6)
  - Menstruation delayed [Unknown]
  - Panic attack [Unknown]
  - Mental disorder [Unknown]
  - Suicidal ideation [Unknown]
  - Hypothyroidism [Not Recovered/Not Resolved]
  - Autoimmune thyroiditis [Recovering/Resolving]

NARRATIVE: CASE EVENT DATE: 20160129
